FAERS Safety Report 16856326 (Version 2)
Quarter: 2019Q4

REPORT INFORMATION
  Report Type: Spontaneous
  Country: IT (occurrence: IT)
  Receive Date: 20190926
  Receipt Date: 20191015
  Transmission Date: 20200122
  Serious: Yes (Other)
  Sender: FDA-Public Use
  Company Number: IT-PFIZER INC-2019400217

PATIENT
  Age: 34 Month
  Sex: Male

DRUGS (6)
  1. CARBOPLATIN. [Suspect]
     Active Substance: CARBOPLATIN
     Dosage: 3-9 INFUSIONS EVERY 3 WEEKS
     Route: 013
  2. MELPHALAN. [Suspect]
     Active Substance: MELPHALAN
     Dosage: 2.5-5 MG, 3-9 INFUSIONS EVERY 3 WEEKS
     Route: 013
  3. CARBOPLATIN. [Suspect]
     Active Substance: CARBOPLATIN
     Indication: RETINOBLASTOMA
     Dosage: 1 INJECTION 1 WEEK AFTER IA
  4. TOPOTECAN HYDROCHLORIDE. [Suspect]
     Active Substance: TOPOTECAN HYDROCHLORIDE
     Indication: RETINOBLASTOMA
     Dosage: 0.3-2 MG, 3-9 INFUSIONS EVERY 3 WEEKS
     Route: 013
  5. TOPOTECAN HYDROCHLORIDE. [Suspect]
     Active Substance: TOPOTECAN HYDROCHLORIDE
     Dosage: 1 INJECTION 1 WEEK AFTER IA
  6. MELPHALAN. [Suspect]
     Active Substance: MELPHALAN
     Indication: RETINOBLASTOMA
     Dosage: 10-30 UG, 1 INJECTION 1 WEEK AFTER IA

REACTIONS (4)
  - Product use in unapproved indication [Unknown]
  - Off label use [Unknown]
  - Chorioretinal atrophy [Unknown]
  - Product use issue [Unknown]
